FAERS Safety Report 4944227-9 (Version None)
Quarter: 2006Q1

REPORT INFORMATION
  Report Type: 
  Country: None (occurrence: None)
  Receive Date: 20060315
  Receipt Date: 20060303
  Transmission Date: 20060701
  Serious: Yes (Death, Hospitalization)
  Sender: FDA-Public Use
  Company Number: JP-JNJFOC-20051204239

PATIENT
  Age: 79 Year
  Sex: Male

DRUGS (9)
  1. TAVANIC [Suspect]
     Route: 050
     Dates: start: 20051209, end: 20051213
  2. NEXIUM [Concomitant]
     Route: 050
  3. TRANSTEC [Concomitant]
  4. ASPIRIN [Concomitant]
     Route: 050
  5. FUROSEMIDE [Concomitant]
     Route: 050
  6. MOVICOL [Concomitant]
     Route: 050
  7. MOVICOL [Concomitant]
     Route: 050
  8. MOVICOL [Concomitant]
     Route: 050
  9. MOVICOL [Concomitant]
     Route: 050

REACTIONS (2)
  - PNEUMONIA [None]
  - RHABDOMYOLYSIS [None]
